FAERS Safety Report 13958538 (Version 2)
Quarter: 2017Q3

REPORT INFORMATION
  Report Type: Spontaneous
  Country: US (occurrence: US)
  Receive Date: 20170912
  Receipt Date: 20170918
  Transmission Date: 20171128
  Serious: Yes (Other)
  Sender: FDA-Public Use
  Company Number: US-PFIZER INC-2017394506

PATIENT
  Age: 66 Year
  Sex: Female

DRUGS (1)
  1. EFFEXOR XR [Suspect]
     Active Substance: VENLAFAXINE HYDROCHLORIDE
     Indication: HYPOTENSION
     Dosage: 37.5 MG, 1X/DAY
     Route: 048
     Dates: end: 2017

REACTIONS (5)
  - Blindness [Unknown]
  - Hypoacusis [Unknown]
  - Visual impairment [Not Recovered/Not Resolved]
  - Hallucination, visual [Unknown]
  - Body height decreased [Unknown]

NARRATIVE: CASE EVENT DATE: 2017
